FAERS Safety Report 9563937 (Version 1)
Quarter: 2013Q3

REPORT INFORMATION
  Report Type: Spontaneous
  Country: US (occurrence: US)
  Receive Date: 20130927
  Receipt Date: 20130927
  Transmission Date: 20140515
  Serious: No
  Sender: FDA-Public Use
  Company Number: US-009507513-1309USA013687

PATIENT
  Sex: Female

DRUGS (1)
  1. AFRIN [Suspect]
     Indication: NASOPHARYNGITIS
     Dosage: UNK, UNKNOWN
     Route: 045
     Dates: start: 201309

REACTIONS (3)
  - Nasal discomfort [Unknown]
  - Insomnia [Unknown]
  - Incorrect drug administration duration [Unknown]
